FAERS Safety Report 9513015 (Version 1)
Quarter: 2013Q3

REPORT INFORMATION
  Report Type: Spontaneous
  Country: US (occurrence: US)
  Receive Date: 20130910
  Receipt Date: 20130910
  Transmission Date: 20140515
  Serious: No
  Sender: FDA-Public Use
  Company Number: US-PFIZER INC-2013258067

PATIENT
  Age: 81 Year
  Sex: Female
  Weight: 72.56 kg

DRUGS (6)
  1. ADVIL [Suspect]
     Indication: NASOPHARYNGITIS
     Dosage: 400 MG (200MG X 2), ONCE
     Route: 048
     Dates: start: 20130905, end: 20130905
  2. ADVIL [Suspect]
     Indication: PAIN
  3. TYLENOL [Suspect]
     Dosage: UNK
  4. LEVOTHYROXINE [Concomitant]
     Indication: THYROID DISORDER
     Dosage: 75 UG, DAILY
  5. SIMVASTATIN [Concomitant]
     Indication: BLOOD CHOLESTEROL ABNORMAL
     Dosage: 10 MG, DAILY
  6. AMLODIPINE BESILATE [Concomitant]
     Indication: BLOOD PRESSURE ABNORMAL
     Dosage: 10 MG, DAILY

REACTIONS (4)
  - Off label use [Unknown]
  - Drug ineffective [Unknown]
  - Headache [Unknown]
  - Hyperhidrosis [Unknown]
